FAERS Safety Report 11774514 (Version 1)
Quarter: 2015Q4

REPORT INFORMATION
  Report Type: Spontaneous
  Country: US (occurrence: None)
  Receive Date: 20151124
  Receipt Date: 20151124
  Transmission Date: 20160304
  Serious: Yes (Other)
  Sender: FDA-Public Use
  Company Number: US-MDT-ADR-2015-02233

PATIENT
  Age: 40 Year
  Sex: Male

DRUGS (1)
  1. BACLOFEN INTRATHECAL [Suspect]
     Active Substance: BACLOFEN
     Indication: MUSCLE SPASTICITY
     Dosage: 185MCG/DAY

REACTIONS (7)
  - Pain [None]
  - Muscle spasms [None]
  - Accident [None]
  - Drug resistance [None]
  - Hypertonia [None]
  - Decubitus ulcer [None]
  - Femur fracture [None]
